FAERS Safety Report 7340470-2 (Version None)
Quarter: 2011Q1

REPORT INFORMATION
  Report Type: 
  Country: None (occurrence: None)
  Receive Date: 20110309
  Receipt Date: 20110301
  Transmission Date: 20110831
  Serious: Yes (Hospitalization)
  Sender: FDA-Public Use
  Company Number: US-JNJFOC-20110301905

PATIENT
  Sex: Male
  Weight: 74.84 kg

DRUGS (1)
  1. NUCYNTA [Suspect]
     Indication: BACK PAIN
     Route: 048

REACTIONS (3)
  - GASTRIC DISORDER [None]
  - NAUSEA [None]
  - VOMITING [None]
